FAERS Safety Report 8557199-5 (Version None)
Quarter: 2012Q3

REPORT INFORMATION
  Report Type: 
  Country: None (occurrence: None)
  Receive Date: 20120801
  Receipt Date: 20120726
  Transmission Date: 20120928
  Serious: Yes (Life-Threatening, Hospitalization, Other)
  Sender: FDA-Public Use
  Company Number: PHHY2012JP036805

PATIENT
  Sex: Male
  Weight: 54 kg

DRUGS (17)
  1. CLOZARIL [Suspect]
     Indication: SCHIZOPHRENIA, PARANOID TYPE
     Dosage: 12.5 MG, UNK
     Route: 048
     Dates: start: 20120410, end: 20120410
  2. CLOZARIL [Suspect]
     Dosage: 100 MG, DAILY
     Route: 048
     Dates: start: 20120418, end: 20120419
  3. LAMICTAL [Concomitant]
     Dosage: 100 MG, UNK
     Route: 048
     Dates: start: 20120410
  4. LAMICTAL [Concomitant]
     Dosage: 25 MG, UNK
     Route: 048
     Dates: end: 20120420
  5. CLOZARIL [Suspect]
     Dosage: 25 MG, DAILY
     Route: 048
     Dates: start: 20120411, end: 20120412
  6. CLOZARIL [Suspect]
     Dosage: 100 MG, UNK
     Route: 048
     Dates: start: 20120425, end: 20120425
  7. VOLTAREN [Suspect]
     Dosage: 25 MG, 4 TIMES PER DAY
     Dates: start: 20120424, end: 20120427
  8. CLOZARIL [Suspect]
     Dosage: 75 MG, UNK
     Route: 048
     Dates: start: 20120416, end: 20120417
  9. LAMICTAL [Concomitant]
     Dosage: 75 MG, UNK
     Route: 048
  10. CLOZARIL [Suspect]
     Dosage: 50 MG, UNK
     Dates: start: 20120426, end: 20120426
  11. ZYPREXA [Concomitant]
     Dosage: 10 MG, UNK
     Route: 048
     Dates: start: 20120410
  12. CLOZARIL [Suspect]
     Dosage: 125 MG, DAILY
     Route: 048
     Dates: start: 20120420, end: 20120422
  13. ZYPREXA [Concomitant]
     Dosage: 20 MG, UNK
     Route: 048
  14. LITHIUM CARBONATE [Concomitant]
     Indication: SCHIZOPHRENIA, PARANOID TYPE
     Dosage: 400 MG, UNK
     Route: 048
     Dates: start: 20120410
  15. CLOZARIL [Suspect]
     Dosage: 50 MG, UNK
     Route: 048
     Dates: start: 20120413, end: 20120415
  16. CLOZARIL [Suspect]
     Dosage: 150 MG, UNK
     Route: 048
     Dates: start: 20120423, end: 20120424
  17. FAMOTIDINE [Concomitant]
     Indication: PROPHYLAXIS
     Dosage: 20 MG, UNK
     Route: 048
     Dates: start: 20120425, end: 20120426

REACTIONS (15)
  - CARDIOMYOPATHY [None]
  - DEHYDRATION [None]
  - HYPERPHOSPHATASAEMIA [None]
  - EATING DISORDER [None]
  - C-REACTIVE PROTEIN INCREASED [None]
  - RENAL DISORDER [None]
  - PYREXIA [None]
  - MYOCARDITIS [None]
  - ILEUS PARALYTIC [None]
  - LEFT VENTRICULAR FAILURE [None]
  - SHOCK [None]
  - HYPOTENSION [None]
  - PULMONARY CONGESTION [None]
  - EJECTION FRACTION DECREASED [None]
  - DELUSION [None]
